FAERS Safety Report 5863460-5 (Version None)
Quarter: 2008Q3

REPORT INFORMATION
  Report Type: 
  Country: None (occurrence: None)
  Receive Date: 20080828
  Receipt Date: 20080827
  Transmission Date: 20090109
  Serious: Yes (Other)
  Sender: FDA-Public Use
  Company Number: US-BAYER-200811516BCC

PATIENT
  Age: 12 Year
  Sex: Male
  Weight: 95 kg

DRUGS (3)
  1. RID SHAMPOO [Suspect]
     Indication: LICE INFESTATION
     Route: 061
     Dates: start: 20080414
  2. RID HOME LICE CONTROL SPRAY [Suspect]
     Indication: LICE INFESTATION
     Route: 050
     Dates: start: 20080414
  3. CLARITIN [Concomitant]

REACTIONS (2)
  - ASTHMA [None]
  - COUGH [None]
